FAERS Safety Report 21619725 (Version 1)
Quarter: 2022Q4

REPORT INFORMATION
  Report Type: Spontaneous
  Country: US (occurrence: US)
  Receive Date: 20221121
  Receipt Date: 20221121
  Transmission Date: 20230113
  Serious: No
  Sender: FDA-Public Use
  Company Number: US-MTPC-MTDA2022-0028960

PATIENT
  Sex: Female

DRUGS (4)
  1. RADICAVA [Suspect]
     Active Substance: EDARAVONE
     Indication: Amyotrophic lateral sclerosis
     Dosage: 5 MILLILITER, QD 10 OUT OF 14 DAYS THEN 14 DAYS OFF
     Route: 048
     Dates: start: 20220816
  2. RADICAVA [Suspect]
     Active Substance: EDARAVONE
     Indication: Amyotrophic lateral sclerosis
     Dosage: 5 MILLILITER, QD 10 OUT OF 14 DAYS THEN 14 DAYS OFF
     Route: 048
     Dates: start: 20220816
  3. RADICAVA [Suspect]
     Active Substance: EDARAVONE
     Dosage: 5 MILLILITER, QD, 10 OUT OF 14 DAYS THEN 14 DAYS OFF
  4. RADICAVA [Suspect]
     Active Substance: EDARAVONE
     Dosage: 5 MILLILITER, QD, 10 OUT OF 14 DAYS THEN 14 DAYS OFF

REACTIONS (1)
  - Incorrect dose administered [Unknown]
